FAERS Safety Report 9603754 (Version 1)
Quarter: 2013Q4

REPORT INFORMATION
  Report Type: Report from Study
  Country: ES (occurrence: ES)
  Receive Date: 20131007
  Receipt Date: 20131007
  Transmission Date: 20140711
  Serious: Yes (Other)
  Sender: FDA-Public Use
  Company Number: ES-MERCK-1310ESP000712

PATIENT
  Sex: Male

DRUGS (3)
  1. PEGINTRON [Suspect]
     Indication: CHRONIC HEPATITIS C
     Dosage: 100 MCG, ONCE PER WEEK
     Route: 058
     Dates: start: 20120123, end: 20121230
  2. RIBAVIRIN [Suspect]
     Indication: CHRONIC HEPATITIS C
     Dosage: 1000 MG EVERY 24H, DISTRIBUTED IN 2 INTAKES
     Route: 048
     Dates: start: 20120123, end: 20121230
  3. VICTRELIS [Suspect]
     Indication: CHRONIC HEPATITIS C
     Dosage: 800 MG, 3 TIMES PER DAY
     Route: 048
     Dates: start: 20120224, end: 20121230

REACTIONS (10)
  - Skin wound [Unknown]
  - Pruritus [Unknown]
  - Asthenia [Unknown]
  - Decreased appetite [Unknown]
  - Epistaxis [Unknown]
  - Irritability [Unknown]
  - Cough [Unknown]
  - Anaemia [Recovered/Resolved]
  - Thrombocytopenia [Recovered/Resolved]
  - Neutropenia [Recovered/Resolved]
